FAERS Safety Report 7370976-1 (Version None)
Quarter: 2011Q1

REPORT INFORMATION
  Report Type: 
  Country: None (occurrence: None)
  Receive Date: 20110324
  Receipt Date: 20110314
  Transmission Date: 20110831
  Serious: No
  Sender: FDA-Public Use
  Company Number: US-BIOGENIDEC-2011BI009850

PATIENT
  Age: 35 Year
  Sex: Female

DRUGS (2)
  1. AVONEX [Suspect]
     Indication: MULTIPLE SCLEROSIS
     Route: 030
     Dates: start: 20101215
  2. AVONEX [Suspect]
     Route: 030
     Dates: start: 20091015, end: 20091015

REACTIONS (3)
  - ALOPECIA [None]
  - CHROMATURIA [None]
  - INFLUENZA LIKE ILLNESS [None]
